FAERS Safety Report 19693288 (Version 8)
Quarter: 2022Q2

REPORT INFORMATION
  Report Type: Report from Study
  Country: US (occurrence: US)
  Receive Date: 20210813
  Receipt Date: 20220521
  Transmission Date: 20220721
  Serious: Yes (Other)
  Sender: FDA-Public Use
  Company Number: NVSC2021US179239

PATIENT
  Sex: Female

DRUGS (1)
  1. ENTRESTO [Suspect]
     Active Substance: SACUBITRIL\VALSARTAN
     Indication: Product used for unknown indication
     Dosage: 1 DF, BID (24/26 MG)
     Route: 048

REACTIONS (12)
  - Diabetes mellitus [Unknown]
  - Muscular weakness [Unknown]
  - Decreased appetite [Not Recovered/Not Resolved]
  - Clumsiness [Unknown]
  - Dysgeusia [Unknown]
  - Asthenia [Unknown]
  - Weight increased [Unknown]
  - General physical health deterioration [Unknown]
  - Back disorder [Unknown]
  - Dry skin [Unknown]
  - Pruritus [Recovering/Resolving]
  - Cough [Unknown]
